FAERS Safety Report 16964916 (Version 2)
Quarter: 2020Q1

REPORT INFORMATION
  Report Type: Spontaneous
  Country: GB (occurrence: GB)
  Receive Date: 20191028
  Receipt Date: 20200108
  Transmission Date: 20200409
  Serious: Yes (Death, Hospitalization, Other)
  Sender: FDA-Public Use
  Company Number: GB-AUROBINDO-AUR-APL-2019-068522

PATIENT
  Age: 69 Year
  Sex: Female
  Weight: 60 kg

DRUGS (10)
  1. OLANZAPINE TABLET [Suspect]
     Active Substance: OLANZAPINE
     Dosage: 30 MILLIGRAM, TWO TIMES A DAY
     Route: 048
     Dates: start: 20170317
  2. OLANZAPINE TABLET [Suspect]
     Active Substance: OLANZAPINE
     Dosage: 25 MILLIGRAM
     Route: 048
     Dates: start: 20170525
  3. CARBAMAZEPINE. [Concomitant]
     Active Substance: CARBAMAZEPINE
     Indication: PRODUCT USED FOR UNKNOWN INDICATION
     Dosage: UNK
     Route: 065
     Dates: start: 20170317
  4. SODIUM VALPROATE [Concomitant]
     Active Substance: VALPROATE SODIUM
     Indication: PRODUCT USED FOR UNKNOWN INDICATION
     Dosage: UNK
     Route: 048
  5. OLANZAPINE TABLET [Suspect]
     Active Substance: OLANZAPINE
     Indication: PRODUCT USED FOR UNKNOWN INDICATION
     Dosage: 5 MILLIGRAM
     Route: 048
     Dates: start: 20170317
  6. OLANZAPINE TABLET [Suspect]
     Active Substance: OLANZAPINE
     Dosage: 30 MILLIGRAM
     Route: 048
     Dates: start: 20170525
  7. OLANZAPINE TABLET [Suspect]
     Active Substance: OLANZAPINE
     Dosage: 25 MILLIGRAM
     Route: 048
     Dates: start: 20170523
  8. RAMIPRIL. [Concomitant]
     Active Substance: RAMIPRIL
     Indication: HYPERTENSION
     Dosage: UNK
     Route: 048
  9. OLANZAPINE TABLET [Suspect]
     Active Substance: OLANZAPINE
     Dosage: 27.5 MILLIGRAM
     Route: 048
     Dates: start: 20170523
  10. LITHIUM. [Concomitant]
     Active Substance: LITHIUM
     Indication: BIPOLAR DISORDER
     Dosage: UNK
     Route: 048

REACTIONS (14)
  - Fall [Recovered/Resolved]
  - Urinary tract infection [Unknown]
  - Aspiration [Unknown]
  - Choking [Recovered/Resolved]
  - Hypotension [Recovered/Resolved]
  - Lower respiratory tract infection [Recovered/Resolved]
  - Head injury [Unknown]
  - Pneumonia [Fatal]
  - Acute respiratory failure [Unknown]
  - Contraindicated product administered [Unknown]
  - Dysplasia [Recovered/Resolved]
  - Overdose [Fatal]
  - Dysphagia [Recovered/Resolved]
  - Hyponatraemia [Unknown]

NARRATIVE: CASE EVENT DATE: 20170317
